FAERS Safety Report 23592297 (Version 1)
Quarter: 2024Q1

REPORT INFORMATION
  Report Type: Spontaneous
  Country: AT (occurrence: AT)
  Receive Date: 20240304
  Receipt Date: 20240304
  Transmission Date: 20240409
  Serious: Yes (Other)
  Sender: FDA-Public Use
  Company Number: AT-GENMAB-2024-00653

PATIENT
  Sex: Male

DRUGS (1)
  1. EPCORITAMAB [Suspect]
     Active Substance: EPCORITAMAB
     Indication: Diffuse large B-cell lymphoma
     Dosage: 4 MG 2 STEPS UP DOSES
     Route: 065
     Dates: start: 202312

REACTIONS (1)
  - Diffuse large B-cell lymphoma [Not Recovered/Not Resolved]
